FAERS Safety Report 7513932-2 (Version None)
Quarter: 2011Q2

REPORT INFORMATION
  Report Type: 
  Country: None (occurrence: None)
  Receive Date: 20110531
  Receipt Date: 20110518
  Transmission Date: 20111010
  Serious: Yes (Hospitalization, Other)
  Sender: FDA-Public Use
  Company Number: PHHY2011IT43149

PATIENT
  Sex: Female

DRUGS (1)
  1. CARBOPLATIN [Suspect]
     Indication: OVARIAN EPITHELIAL CANCER
     Dosage: 620 MG, (CYCLIC DOSSAGE)
     Route: 042
     Dates: start: 20100420, end: 20101116

REACTIONS (5)
  - ANAEMIA [None]
  - THROMBOCYTOPENIA [None]
  - DYSPNOEA [None]
  - OEDEMA [None]
  - NEUTROPENIA [None]
